FAERS Safety Report 8978268 (Version 1)
Quarter: 2012Q4

REPORT INFORMATION
  Report Type: Spontaneous
  Country: US (occurrence: None)
  Receive Date: 20121218
  Receipt Date: 20121218
  Transmission Date: 20130627
  Serious: Yes (Hospitalization)
  Sender: FDA-Public Use
  Company Number: None

PATIENT
  Age: 84 Year
  Sex: Female
  Weight: 55.79 kg

DRUGS (1)
  1. DEXAMETHASONE [Suspect]
     Indication: WART
     Dosage: 0.75 M Tab ROXA 1 4 times a day oral
(3 LEFT)
     Route: 048
     Dates: start: 20121001, end: 20121005

REACTIONS (4)
  - Hallucination, visual [None]
  - Disorientation [None]
  - Blood pressure increased [None]
  - Walking aid user [None]
